FAERS Safety Report 18203207 (Version 1)
Quarter: 2020Q3

REPORT INFORMATION
  Report Type: Report from Study
  Country: US (occurrence: US)
  Receive Date: 20200827
  Receipt Date: 20200827
  Transmission Date: 20201103
  Serious: No
  Sender: FDA-Public Use
  Company Number: NVSC2020US236886

PATIENT
  Sex: Female
  Weight: 108.84 kg

DRUGS (1)
  1. COSENTYX [Suspect]
     Active Substance: SECUKINUMAB
     Indication: DERMATITIS
     Route: 058

REACTIONS (3)
  - Dermatitis [Unknown]
  - Condition aggravated [Unknown]
  - Drug ineffective [Unknown]
